FAERS Safety Report 6808499-8 (Version None)
Quarter: 2010Q2

REPORT INFORMATION
  Report Type: 
  Country: None (occurrence: None)
  Receive Date: 20100629
  Receipt Date: 20090708
  Transmission Date: 20101027
  Serious: No
  Sender: FDA-Public Use
  Company Number: US-PFIZER INC-2009237920

PATIENT
  Sex: Female
  Weight: 70.3 kg

DRUGS (6)
  1. XANAX [Suspect]
     Dosage: 0.5 MG, 1X/DAY
     Dates: end: 20090601
  2. MODAFINIL [Interacting]
     Dosage: 200MG/DAY
     Route: 048
     Dates: start: 20090101
  3. PROZAC [Concomitant]
     Indication: DEPRESSION
     Dosage: UNK
     Dates: start: 20080101
  4. WELLBUTRIN [Concomitant]
     Indication: DEPRESSION
     Dosage: UNK
     Dates: start: 20080101
  5. ACETYLSALICYLIC ACID [Concomitant]
     Indication: CEREBROVASCULAR ACCIDENT
     Dosage: UNK
     Dates: start: 20080101
  6. TOPROL-XL [Concomitant]
     Dosage: UNK
     Dates: start: 20080101

REACTIONS (3)
  - ABNORMAL DREAMS [None]
  - DRUG INTERACTION [None]
  - HALLUCINATION [None]
